FAERS Safety Report 16962504 (Version 1)
Quarter: 2019Q4

REPORT INFORMATION
  Report Type: Spontaneous
  Country: US (occurrence: US)
  Receive Date: 20191025
  Receipt Date: 20191025
  Transmission Date: 20200122
  Serious: Yes (Death)
  Sender: FDA-Public Use
  Company Number: None

PATIENT
  Age: 80 Year
  Sex: Female

DRUGS (13)
  1. PLAVIX TAB 75 MG [Concomitant]
  2. PANTOPRAZOLE TAB 40 MG [Concomitant]
  3. CLONAZEPAM TAB 0.5 MG [Concomitant]
  4. ENBREL [Suspect]
     Active Substance: ETANERCEPT
     Indication: RHEUMATOID ARTHRITIS
     Dosage: ?          OTHER FREQUENCY:WEEKLY;?
     Route: 058
     Dates: start: 20190717, end: 20191023
  5. METOPROLOL TAR TAB 50 MG [Concomitant]
  6. ASPRIRIN LOW TAB 81 MG [Concomitant]
  7. U [Concomitant]
     Active Substance: UNSPECIFIED INGREDIENT
  8. PREDNISONE TAB 5 MG [Concomitant]
  9. LEVOTHYROXINE TAB 100 MCG [Concomitant]
  10. ARAVA TAB 10 MG [Concomitant]
  11. FUROSEMIDE TAB 40 MG [Concomitant]
  12. LISINOPRIL TAB 5 MG [Concomitant]
  13. DULOXETINE CAP 60 MG [Concomitant]

REACTIONS (1)
  - Death [None]
